FAERS Safety Report 6419111-4 (Version None)
Quarter: 2009Q4

REPORT INFORMATION
  Report Type: 
  Country: None (occurrence: None)
  Receive Date: 20091029
  Receipt Date: 20091019
  Transmission Date: 20100525
  Serious: Yes (Hospitalization, Other)
  Sender: FDA-Public Use
  Company Number: BR-ROCHE-522831

PATIENT
  Sex: Female

DRUGS (5)
  1. MYCOPHENOLATE MOFETIL [Suspect]
     Route: 065
     Dates: start: 20070514
  2. MYCOPHENOLATE MOFETIL [Suspect]
     Dosage: REDUCED DOSE.
     Route: 065
     Dates: end: 20070717
  3. MYCOPHENOLATE MOFETIL [Suspect]
     Dosage: DOSAGE NOT SPECIFIED. DOSAGE LOWERED.
     Route: 065
     Dates: start: 20071221
  4. BELATACEPT [Suspect]
     Dosage: FORM: SOLUTION (PER PROTOCOL); LESS INTENSIVE REGIMEN
     Route: 042
     Dates: start: 20070513
  5. PREDNISONE [Suspect]
     Route: 065
     Dates: start: 20070517

REACTIONS (3)
  - ANAEMIA [None]
  - MYELODYSPLASTIC SYNDROME [None]
  - THROMBOCYTOPENIA [None]
